FAERS Safety Report 6100894-8 (Version None)
Quarter: 2009Q1

REPORT INFORMATION
  Report Type: 
  Country: None (occurrence: None)
  Receive Date: 20090220
  Receipt Date: 20090205
  Transmission Date: 20090719
  Serious: No
  Sender: FDA-Public Use
  Company Number: B0559243A

PATIENT
  Age: 73 Year
  Sex: Female

DRUGS (3)
  1. ROSIGLITAZONE MALEATE [Suspect]
     Indication: TYPE 2 DIABETES MELLITUS
  2. HEMODIALYSIS [Concomitant]
  3. INT./LONG-ACTING INSULIN [Concomitant]

REACTIONS (2)
  - HYPOTENSION [None]
  - PLEURAL EFFUSION [None]
